FAERS Safety Report 9217088 (Version 3)
Quarter: 2013Q2

REPORT INFORMATION
  Report Type: Spontaneous
  Country: IT (occurrence: IT)
  Receive Date: 20130408
  Receipt Date: 20130517
  Transmission Date: 20140414
  Serious: Yes (Hospitalization, Other)
  Sender: FDA-Public Use
  Company Number: IT-PFIZER INC-2013109288

PATIENT
  Age: 66 Year
  Sex: Male

DRUGS (5)
  1. NEURONTIN [Suspect]
     Indication: DIABETIC NEUROPATHY
     Dosage: 600 MG, 1X/DAY
     Route: 048
     Dates: start: 20130326, end: 20130330
  2. CARDICOR [Concomitant]
     Indication: CARDIAC FAILURE
     Dosage: 7.5 MG, UNK
     Route: 048
  3. TRENTAL [Concomitant]
     Indication: DIABETIC VASCULAR DISORDER
     Dosage: 400 MG, UNK
     Route: 048
  4. AMLODIPINE BESILATE [Concomitant]
     Indication: HYPERTENSION
     Dosage: 5 MG, UNK
     Route: 048
  5. FUROSEMIDE [Concomitant]
     Indication: RENAL FAILURE CHRONIC
     Dosage: 750 MG, UNK
     Route: 048

REACTIONS (3)
  - Asthenia [Recovering/Resolving]
  - Hypotension [Recovering/Resolving]
  - Rhabdomyolysis [Recovering/Resolving]
